FAERS Safety Report 16797196 (Version 1)
Quarter: 2019Q3

REPORT INFORMATION
  Report Type: Spontaneous
  Country: US (occurrence: US)
  Receive Date: 20190912
  Receipt Date: 20190912
  Transmission Date: 20191005
  Serious: Yes (Death)
  Sender: FDA-Public Use
  Company Number: US-ROCHE-2405153

PATIENT
  Sex: Female

DRUGS (10)
  1. TRULICITY [Concomitant]
     Active Substance: DULAGLUTIDE
  2. SYMBICORT [Concomitant]
     Active Substance: BUDESONIDE\FORMOTEROL FUMARATE DIHYDRATE
  3. ATORVASTATIN [Concomitant]
     Active Substance: ATORVASTATIN
  4. ESBRIET [Suspect]
     Active Substance: PIRFENIDONE
     Indication: PULMONARY FIBROSIS
     Route: 048
     Dates: start: 20190809
  5. BUPROPION. [Concomitant]
     Active Substance: BUPROPION
  6. OXYBUTYNIN. [Concomitant]
     Active Substance: OXYBUTYNIN CHLORIDE
  7. GLIMEPIRIDE. [Concomitant]
     Active Substance: GLIMEPIRIDE
  8. FLUOXETINE [Concomitant]
     Active Substance: FLUOXETINE HYDROCHLORIDE
  9. LANTUS [Concomitant]
     Active Substance: INSULIN GLARGINE
  10. LEVOTHYROXINE. [Concomitant]
     Active Substance: LEVOTHYROXINE

REACTIONS (1)
  - Death [Fatal]
